FAERS Safety Report 8524208 (Version 3)
Quarter: 2012Q4

REPORT INFORMATION
  Report Type: 
  Country: SE (occurrence: SE)
  Receive Date: 20120420
  Receipt Date: 20121026
  Transmission Date: 20130627
  Serious: Yes (Hospitalization, Other)
  Sender: FDA-Public Use
  Company Number: PHHY2012SE032296

PATIENT
  Age: 38 Year
  Sex: Female

DRUGS (4)
  1. TYSABRI [Suspect]
     Route: 042
     Dates: start: 20080130, end: 20110903
  2. GILENYA [Suspect]
  3. SERTRALINE [Concomitant]
  4. MODIODAL [Concomitant]

REACTIONS (7)
  - Progressive multifocal leukoencephalopathy [Not Recovered/Not Resolved]
  - Central nervous system lesion [Recovering/Resolving]
  - Multiple sclerosis relapse [Recovering/Resolving]
  - Facial paresis [Recovering/Resolving]
  - Dysarthria [Recovering/Resolving]
  - Dysentery [Recovering/Resolving]
  - Immune reconstitution inflammatory syndrome [Recovering/Resolving]
